FAERS Safety Report 21425977 (Version 1)
Quarter: 2022Q4

REPORT INFORMATION
  Report Type: Spontaneous
  Country: GB (occurrence: GB)
  Receive Date: 20221008
  Receipt Date: 20221008
  Transmission Date: 20230112
  Serious: Yes (Other)
  Sender: FDA-Public Use
  Company Number: GB-SANOFI-01287963

PATIENT
  Age: 62 Year
  Sex: Female

DRUGS (2)
  1. BISOPROLOL FUMARATE [Suspect]
     Active Substance: BISOPROLOL FUMARATE
     Indication: Rheumatoid arthritis
     Dosage: UNK; ADDITIONAL INFO: STRENGTH : 2.5 MG
     Route: 065
  2. BISOPROLOL FUMARATE [Suspect]
     Active Substance: BISOPROLOL FUMARATE
     Dosage: STRENGTH: 2.5 MG
     Route: 065

REACTIONS (4)
  - Myocardial infarction [Unknown]
  - Malaise [Unknown]
  - Abdominal pain upper [Unknown]
  - Headache [Unknown]
